FAERS Safety Report 21911014 (Version 1)
Quarter: 2023Q1

REPORT INFORMATION
  Report Type: Spontaneous
  Country: US (occurrence: US)
  Receive Date: 20230125
  Receipt Date: 20230125
  Transmission Date: 20230417
  Serious: No
  Sender: FDA-Public Use
  Company Number: US-ALLERGAN-2208275US

PATIENT
  Age: 32 Year
  Sex: Female

DRUGS (4)
  1. BOTOX COSMETIC [Suspect]
     Active Substance: ONABOTULINUMTOXINA
     Indication: Bruxism
     Dosage: 25 UNITS, SINGLE
     Dates: start: 20200901, end: 20200901
  2. BOTOX COSMETIC [Suspect]
     Active Substance: ONABOTULINUMTOXINA
     Dosage: 25 UNITS, SINGLE
     Dates: start: 20200901, end: 20200901
  3. JEUVEAU [Suspect]
     Active Substance: PRABOTULINUMTOXINA-XVFS
     Indication: Product used for unknown indication
     Dosage: UNK
     Dates: start: 202012
  4. NALTREXONE [Concomitant]
     Active Substance: NALTREXONE
     Dosage: 4.5 MG, QD
     Route: 048

REACTIONS (7)
  - Feeling abnormal [Recovered/Resolved]
  - Eyelid rash [Recovered/Resolved]
  - Muscle twitching [Recovered/Resolved]
  - Off label use [Unknown]
  - Mastocytosis [Not Recovered/Not Resolved]
  - Swelling face [Recovered/Resolved]
  - Dizziness [Recovered/Resolved]

NARRATIVE: CASE EVENT DATE: 20200901
